FAERS Safety Report 12934894 (Version 1)
Quarter: 2016Q4

REPORT INFORMATION
  Report Type: Spontaneous
  Country: US (occurrence: US)
  Receive Date: 20161112
  Receipt Date: 20161112
  Transmission Date: 20170207
  Serious: Yes (Hospitalization)
  Sender: FDA-Public Use
  Company Number: US-BRISTOL-MYERS SQUIBB COMPANY-BMS-2016-094110

PATIENT
  Sex: Male
  Weight: 101.1 kg

DRUGS (2)
  1. YERVOY [Suspect]
     Active Substance: IPILIMUMAB
     Indication: PRODUCT USED FOR UNKNOWN INDICATION
     Dosage: UNK
     Route: 065
     Dates: start: 201608
  2. YERVOY [Suspect]
     Active Substance: IPILIMUMAB
     Indication: METASTATIC MALIGNANT MELANOMA
     Dosage: UNK
     Route: 065
     Dates: start: 201607

REACTIONS (8)
  - Decreased appetite [Unknown]
  - Pyrexia [Unknown]
  - Feeding disorder [Unknown]
  - Adverse event [Unknown]
  - Nausea [Unknown]
  - Weight decreased [Unknown]
  - Skin exfoliation [Unknown]
  - Dehydration [Unknown]
